FAERS Safety Report 8144609-0 (Version None)
Quarter: 2012Q1

REPORT INFORMATION
  Report Type: 
  Country: None (occurrence: None)
  Receive Date: 20120217
  Receipt Date: 20120214
  Transmission Date: 20120608
  Serious: Yes (Other)
  Sender: FDA-Public Use
  Company Number: US-PFIZER INC-2012040881

PATIENT
  Sex: Male
  Weight: 80.272 kg

DRUGS (4)
  1. LYRICA [Suspect]
     Indication: PERONEAL NERVE PALSY
     Dosage: 50 MG, 3X/DAY
     Route: 048
     Dates: end: 20120101
  2. LYRICA [Suspect]
     Indication: PAIN IN EXTREMITY
  3. LYRICA [Suspect]
     Indication: BURNING SENSATION
  4. LYRICA [Suspect]
     Indication: PARAESTHESIA

REACTIONS (5)
  - OESOPHAGEAL CARCINOMA [None]
  - BURNING SENSATION [None]
  - PAIN IN EXTREMITY [None]
  - PARAESTHESIA [None]
  - SPINAL COMPRESSION FRACTURE [None]
